FAERS Safety Report 7548619-3 (Version None)
Quarter: 2011Q2

REPORT INFORMATION
  Report Type: 
  Country: None (occurrence: None)
  Receive Date: 20110524
  Receipt Date: 20110310
  Transmission Date: 20111010
  Serious: No
  Sender: FDA-Public Use
  Company Number: 026113

PATIENT
  Sex: Female
  Weight: 86.2 kg

DRUGS (16)
  1. BUPROPION HCL [Concomitant]
  2. EXCEDRIN (MIGRAINE) [Concomitant]
  3. TRAMADOL HCL [Concomitant]
  4. VITAMIN D [Concomitant]
  5. EXCEDRIN /00214201/ [Concomitant]
  6. PREDNISONE [Concomitant]
  7. GALENIC /CALCIUM/VITAMIN D/ [Concomitant]
  8. BUPROPION HYDROCHLORIDE [Concomitant]
  9. M.V.I. [Concomitant]
  10. VITAMIN D [Concomitant]
  11. CIMZIA [Suspect]
  12. FLEXERIL [Concomitant]
  13. CIMZIA [Suspect]
     Indication: CROHN'S DISEASE
     Dosage: (400 MG 1X/MONTH SUBCUTANEOUS), (200 MG 1X/2 WEEKS SUBCUTANEOUS), (200 MG 1X/2 WEEKS SUBCUTANEOUS)
     Route: 058
     Dates: start: 20090129, end: 20090910
  14. CIMZIA [Suspect]
     Indication: CROHN'S DISEASE
     Dosage: (400 MG 1X/MONTH SUBCUTANEOUS), (200 MG 1X/2 WEEKS SUBCUTANEOUS), (200 MG 1X/2 WEEKS SUBCUTANEOUS)
     Route: 058
     Dates: start: 20090910
  15. VITAMIN B12 /00056201/ [Concomitant]
  16. PENTASA [Concomitant]

REACTIONS (7)
  - SKIN BURNING SENSATION [None]
  - FATIGUE [None]
  - SINUSITIS [None]
  - FREQUENT BOWEL MOVEMENTS [None]
  - MIGRAINE [None]
  - DIZZINESS [None]
  - PRURITUS [None]
